FAERS Safety Report 20189648 (Version 1)
Quarter: 2021Q4

REPORT INFORMATION
  Report Type: Spontaneous
  Country: AR (occurrence: AR)
  Receive Date: 20211215
  Receipt Date: 20211215
  Transmission Date: 20220303
  Serious: No
  Sender: FDA-Public Use
  Company Number: AR-PFIZER INC-202101034496

PATIENT
  Age: 5 Year
  Sex: Male

DRUGS (1)
  1. GENOTROPIN [Suspect]
     Active Substance: SOMATROPIN
     Dosage: UNK
     Dates: start: 20210309

REACTIONS (2)
  - Drug dose omission by device [Unknown]
  - Device failure [Unknown]

NARRATIVE: CASE EVENT DATE: 20210309
